FAERS Safety Report 25501866 (Version 2)
Quarter: 2025Q3

REPORT INFORMATION
  Report Type: Report from Study
  Country: US (occurrence: US)
  Receive Date: 20250702
  Receipt Date: 20250814
  Transmission Date: 20251021
  Serious: Yes (Hospitalization, Other)
  Sender: ABBVIE
  Company Number: US-ABBVIE-6351226

PATIENT
  Age: 71 Year
  Sex: Male

DRUGS (2)
  1. VYALEV [Suspect]
     Active Substance: FOSCARBIDOPA\FOSLEVODOPA
     Indication: Product used for unknown indication
     Route: 058
     Dates: start: 20250410
  2. VYALEV [Suspect]
     Active Substance: FOSCARBIDOPA\FOSLEVODOPA
     Route: 058
     Dates: end: 20250621

REACTIONS (6)
  - Dehydration [Unknown]
  - Clumsiness [Unknown]
  - Hypoaesthesia [Unknown]
  - Mobility decreased [Unknown]
  - Hallucination [Unknown]
  - Renal failure [Unknown]

NARRATIVE: CASE EVENT DATE: 20250101
